FAERS Safety Report 10187335 (Version 4)
Quarter: 2014Q4

REPORT INFORMATION
  Report Type: Spontaneous
  Country: US (occurrence: US)
  Receive Date: 20140522
  Receipt Date: 20141126
  Transmission Date: 20150528
  Serious: No
  Sender: FDA-Public Use
  Company Number: US-PFIZER INC-2014136368

PATIENT
  Age: 73 Year
  Sex: Male
  Weight: 73.47 kg

DRUGS (4)
  1. SUTENT [Suspect]
     Active Substance: SUNITINIB MALATE
     Dosage: UNK
     Dates: start: 201404, end: 2014
  2. ZINC [Concomitant]
     Active Substance: ZINC\ZINC CHLORIDE
     Dosage: UNK
  3. SUTENT [Suspect]
     Active Substance: SUNITINIB MALATE
     Indication: COLON CANCER
     Dosage: 50 MG, 1X/DAY
     Dates: start: 201403
  4. VITAMIN D [Concomitant]
     Active Substance: CHOLECALCIFEROL
     Dosage: 50,000, UNK

REACTIONS (20)
  - Diarrhoea [Not Recovered/Not Resolved]
  - Gastrooesophageal reflux disease [Not Recovered/Not Resolved]
  - Vomiting [Unknown]
  - Dry mouth [Unknown]
  - Feeling abnormal [Unknown]
  - Nausea [Unknown]
  - Skin exfoliation [Not Recovered/Not Resolved]
  - Feeling abnormal [Unknown]
  - Dysgeusia [Recovered/Resolved]
  - Dysgeusia [Not Recovered/Not Resolved]
  - Dysstasia [Unknown]
  - Pallor [Not Recovered/Not Resolved]
  - Asthenia [Not Recovered/Not Resolved]
  - Abdominal pain upper [Unknown]
  - Malaise [Unknown]
  - Dizziness [Unknown]
  - Salivary hypersecretion [Not Recovered/Not Resolved]
  - Dysgeusia [Unknown]
  - Hair colour changes [Not Recovered/Not Resolved]
  - Blood disorder [Unknown]

NARRATIVE: CASE EVENT DATE: 2014
